FAERS Safety Report 4647511-1 (Version None)
Quarter: 2005Q2

REPORT INFORMATION
  Report Type: 
  Country: None (occurrence: None)
  Receive Date: 20050426
  Receipt Date: 20050413
  Transmission Date: 20051028
  Serious: Yes (Death, Hospitalization)
  Sender: FDA-Public Use
  Company Number: MAG-2005-0000348

PATIENT
  Age: 44 Year
  Sex: Female

DRUGS (16)
  1. OXYCODONE HCL CONTROLLED RELEASE TABLETS (OXYCODONE HYDROCHLORIDE) CR [Suspect]
     Indication: CANCER PAIN
     Dosage: SEE IMAGE
     Route: 048
     Dates: start: 20050225, end: 20050226
  2. OXYCODONE HCL CONTROLLED RELEASE TABLETS (OXYCODONE HYDROCHLORIDE) CR [Suspect]
     Indication: CANCER PAIN
     Dosage: SEE IMAGE
     Route: 048
     Dates: start: 20050227, end: 20050403
  3. OXYCODONE HCL [Suspect]
     Indication: CANCER PAIN
     Dosage: 5 MG, PM, ORAL
     Route: 048
     Dates: start: 20050225, end: 20050404
  4. DEPAS (ETIZOLAM) [Concomitant]
  5. BRONCIN [Concomitant]
  6. DEXAMETHASONE [Concomitant]
  7. ZANTAC [Concomitant]
  8. LOXONIN (LOXOPROFEN SODIUM) [Concomitant]
  9. SALICYLIC ACID (SALICYLIC ACID) [Concomitant]
  10. MAG-LAX (PARAFFIN, LIQUID, MAGNESIUM HYDROCHLORIDE) [Concomitant]
  11. FLAVERIC (BENPROPERINE PHOSPHATE) [Concomitant]
  12. KENALOG [Concomitant]
  13. CATLEP [Concomitant]
  14. XYLOCAINE [Concomitant]
  15. MAZULENIN G [Concomitant]
  16. CODEINE PHOSPHATE [Concomitant]

REACTIONS (7)
  - AFFECT LABILITY [None]
  - APHASIA [None]
  - DYSPHAGIA [None]
  - EXCITABILITY [None]
  - HYPERVENTILATION [None]
  - LUNG NEOPLASM MALIGNANT [None]
  - MALIGNANT NEOPLASM PROGRESSION [None]
